FAERS Safety Report 24882024 (Version 1)
Quarter: 2025Q1

REPORT INFORMATION
  Report Type: Spontaneous
  Country: CA (occurrence: CA)
  Receive Date: 20250124
  Receipt Date: 20250124
  Transmission Date: 20250408
  Serious: Yes (Hospitalization, Other)
  Sender: NOVITIUM PHARMA
  Company Number: CA-NOVITIUMPHARMA-2025CANVP00148

PATIENT
  Age: 16 Month
  Sex: Female

DRUGS (14)
  1. DAPSONE [Suspect]
     Active Substance: DAPSONE
     Indication: Asplenia
  2. DAPSONE [Suspect]
     Active Substance: DAPSONE
  3. AMOXICILLIN [Concomitant]
     Active Substance: AMOXICILLIN
     Indication: Asplenia
  4. MYCOPHENOLATE MOFETIL [Concomitant]
     Active Substance: MYCOPHENOLATE MOFETIL
     Indication: Product used for unknown indication
  5. TACROLIMUS [Concomitant]
     Active Substance: TACROLIMUS
     Indication: Product used for unknown indication
  6. SIROLIMUS [Concomitant]
     Active Substance: SIROLIMUS
     Indication: Product used for unknown indication
  7. AMLODIPINE [Concomitant]
     Active Substance: AMLODIPINE BESYLATE
     Indication: Product used for unknown indication
  8. RITUXIMAB [Concomitant]
     Active Substance: RITUXIMAB
     Indication: Dermatitis bullous
  9. OMALIZUMAB [Concomitant]
     Active Substance: OMALIZUMAB
     Indication: Product used for unknown indication
  10. ASPIRIN [Concomitant]
     Active Substance: ASPIRIN
     Indication: Product used for unknown indication
  11. ACETAMINOPHEN [Concomitant]
     Active Substance: ACETAMINOPHEN
     Indication: Product used for unknown indication
  12. PREDNISONE [Concomitant]
     Active Substance: PREDNISONE
     Indication: Product used for unknown indication
  13. PREDNISONE [Concomitant]
     Active Substance: PREDNISONE
  14. IMMUNE GLOBULIN [Concomitant]
     Indication: Dermatitis bullous

REACTIONS (2)
  - Hypoxia [Unknown]
  - Methaemoglobinaemia [Unknown]
